FAERS Safety Report 20376516 (Version 1)
Quarter: 2022Q1

REPORT INFORMATION
  Report Type: Report from Study
  Country: CO (occurrence: CO)
  Receive Date: 20220125
  Receipt Date: 20220125
  Transmission Date: 20220424
  Serious: Yes (Hospitalization, Other)
  Sender: FDA-Public Use
  Company Number: CO-ELI_LILLY_AND_COMPANY-CO202201008256

PATIENT
  Age: 93 Year
  Sex: Female

DRUGS (1)
  1. FORTEO [Suspect]
     Active Substance: TERIPARATIDE
     Indication: Osteoporosis
     Dosage: 20 UG, DAILY
     Route: 058
     Dates: start: 20201231, end: 202109

REACTIONS (6)
  - Blood calcium decreased [Unknown]
  - Pneumoperitoneum [Unknown]
  - Pneumonia [Unknown]
  - Haemoglobin decreased [Unknown]
  - Gastrointestinal carcinoma [Unknown]
  - Haemoglobin abnormal [Unknown]

NARRATIVE: CASE EVENT DATE: 20210901
